FAERS Safety Report 4684755-7 (Version None)
Quarter: 2005Q2

REPORT INFORMATION
  Report Type: 
  Country: None (occurrence: None)
  Receive Date: 20050603
  Receipt Date: 20050524
  Transmission Date: 20051028
  Serious: Yes (Other)
  Sender: FDA-Public Use
  Company Number: 2005061272

PATIENT
  Age: 45 Year
  Sex: Female

DRUGS (9)
  1. BEXTRA [Suspect]
     Indication: SKIN INFECTION
     Dosage: 40 MG (40 MG, 1 IN 1 D), ORAL
     Route: 048
     Dates: start: 20050101, end: 20050101
  2. BEXTRA [Suspect]
     Indication: STREPTOCOCCAL INFECTION
     Dosage: 40 MG (40 MG, 1 IN 1 D), ORAL
     Route: 048
     Dates: start: 20050101, end: 20050101
  3. PLETIL [Concomitant]
  4. QUEMICETINA (CHLORAMPHENICOL) [Concomitant]
  5. NYSTATINE (NYSTATIN) [Concomitant]
  6. LOXONIN (LOXOPROFEN SODIUM) [Concomitant]
  7. LOMEXIN ^EFFIK' (FENTICONAZOLE NITRATE) [Concomitant]
  8. SECNIDAZOLE (SECNIDAZOLE) [Concomitant]
  9. PROFLOX (MOXIFLOXACIN) [Concomitant]

REACTIONS (3)
  - DRUG HYPERSENSITIVITY [None]
  - DRUG INEFFECTIVE [None]
  - PRURITUS [None]
